FAERS Safety Report 19964226 (Version 1)
Quarter: 2021Q4

REPORT INFORMATION
  Report Type: Spontaneous
  Country: US (occurrence: US)
  Receive Date: 20211014
  Receipt Date: 20211014
  Transmission Date: 20220303
  Serious: No
  Sender: FDA-Public Use
  Company Number: None

PATIENT
  Sex: Female

DRUGS (20)
  1. VERZENIO [Suspect]
     Active Substance: ABEMACICLIB
     Indication: Breast cancer female
     Dosage: TAKE 1 TABLET BY MOUTH 2 TIMES PER DAY.
     Route: 048
     Dates: start: 20210922
  2. AMLODIPINE TAB [Concomitant]
  3. BUSPIRONE TAB [Concomitant]
  4. CALCIUM CAR CHW [Concomitant]
  5. FASLODEX INJ [Concomitant]
  6. FOLIC ACID TAB [Concomitant]
  7. GLUCOSAMINE CAP MSM [Concomitant]
  8. HYDROCODONE POW BITARTRA [Concomitant]
  9. IBRANCE [Concomitant]
     Active Substance: PALBOCICLIB
  10. LIOTHYRONINE POW SODIUM [Concomitant]
  11. METHOTREXATE [Concomitant]
     Active Substance: METHOTREXATE
  12. MYRBETRIQ TAB [Concomitant]
  13. OMEPRAZOLE TAB [Concomitant]
  14. PREDNISONE [Concomitant]
     Active Substance: PREDNISONE
  15. PROBIOTIC CAP [Concomitant]
  16. PROMETHAZINE HYDROCHLORIDE [Concomitant]
     Active Substance: PROMETHAZINE HYDROCHLORIDE
  17. SYNTHROID TAB [Concomitant]
  18. VITAMIN D3 POW [Concomitant]
  19. XGEVA [Concomitant]
     Active Substance: DENOSUMAB
  20. ZINC TAB [Concomitant]

REACTIONS (1)
  - Drug ineffective [None]
